FAERS Safety Report 13466119 (Version 7)
Quarter: 2017Q3

REPORT INFORMATION
  Report Type: Spontaneous
  Country: US (occurrence: US)
  Receive Date: 20170421
  Receipt Date: 20170919
  Transmission Date: 20171127
  Serious: No
  Sender: FDA-Public Use
  Company Number: US-PFIZER INC-2017172966

PATIENT
  Age: 61 Year
  Sex: Female

DRUGS (2)
  1. IBRANCE [Suspect]
     Active Substance: PALBOCICLIB
     Indication: BREAST CANCER FEMALE
     Dosage: 125 MG, DAILY
     Route: 048
     Dates: start: 20160328
  2. IBRANCE [Suspect]
     Active Substance: PALBOCICLIB
     Dosage: 125 MG, CYCLIC (ONCE A DAY, 3 WEEK ON, 1 WEEK OFF)
     Route: 048
     Dates: start: 20170328

REACTIONS (14)
  - Neuropathy peripheral [Unknown]
  - Dizziness [Unknown]
  - Decreased appetite [Unknown]
  - Hot flush [Unknown]
  - Stomatitis [Unknown]
  - Constipation [Unknown]
  - Dysgeusia [Unknown]
  - Amnesia [Unknown]
  - Insomnia [Unknown]
  - Nausea [Unknown]
  - Oral candidiasis [Unknown]
  - Head discomfort [Unknown]
  - Feeling abnormal [Unknown]
  - Headache [Unknown]

NARRATIVE: CASE EVENT DATE: 201704
